FAERS Safety Report 4455916-7 (Version None)
Quarter: 2004Q3

REPORT INFORMATION
  Report Type: 
  Country: None (occurrence: None)
  Receive Date: 20040920
  Receipt Date: 20040910
  Transmission Date: 20050211
  Serious: Yes (Hospitalization)
  Sender: FDA-Public Use
  Company Number: 2004-DE-04659GD

PATIENT
  Age: 60 Year
  Sex: Female

DRUGS (15)
  1. METHOTREXATE [Suspect]
     Indication: RHEUMATOID ARTHRITIS
     Dosage: 20 MG/WEEK
  2. LEFLUNOMIDE [Suspect]
     Indication: RHEUMATOID ARTHRITIS
     Dosage: 20 MG
  3. PENICILLAMINE [Suspect]
     Indication: RHEUMATOID ARTHRITIS
     Dosage: 250 MG
  4. CLONIDINE [Concomitant]
  5. IPRATROPIUM-BROMIDE (IPRATROPIUM BROMIDE) (IPRATROPIUM-BR) [Concomitant]
  6. GLICLAZIDE (GLICLAZIDE) [Concomitant]
  7. PREDNISOLONE [Concomitant]
  8. FOLIC ACID [Concomitant]
  9. VERAPAMIL [Concomitant]
  10. OMEPRAZOLE [Concomitant]
  11. ESTRADIOL [Concomitant]
  12. TENOXICAM (TENOXICAM) [Concomitant]
  13. PENICILLIN [Concomitant]
  14. BECLOMETHASONE (BECLOMETASONE DIPROPIONATE) [Concomitant]
  15. ALBUTEROL [Concomitant]

REACTIONS (4)
  - ESCHERICHIA URINARY TRACT INFECTION [None]
  - PANCYTOPENIA [None]
  - PHARYNGOLARYNGEAL PAIN [None]
  - PYREXIA [None]
